FAERS Safety Report 9556385 (Version 1)
Quarter: 2013Q3

REPORT INFORMATION
  Report Type: Spontaneous
  Country: GB (occurrence: None)
  Receive Date: 20130924
  Receipt Date: 20130924
  Transmission Date: 20140515
  Serious: Yes (Other)
  Sender: FDA-Public Use
  Company Number: GER/UKI/13/0034533

PATIENT
  Age: 78 Year
  Sex: Female

DRUGS (4)
  1. OLANZAPINE [Suspect]
     Indication: VISUAL IMPAIRMENT
  2. SERTRALINE (SERTRALINE) [Suspect]
     Indication: PRODUCT USED FOR UNKNOWN INDICATION
  3. LOSARTAN [Suspect]
     Indication: PRODUCT USED FOR UNKNOWN INDICATION
  4. RAMIPRIL [Suspect]
     Indication: PRODUCT USED FOR UNKNOWN INDICATION

REACTIONS (12)
  - Back pain [None]
  - Confusional state [None]
  - Fall [None]
  - Feeling cold [None]
  - Hallucination [None]
  - Infection [None]
  - Pallor [None]
  - Sopor [None]
  - Suspiciousness [None]
  - Gait disturbance [None]
  - Adverse drug reaction [None]
  - Pallor [None]
